FAERS Safety Report 5127239-4 (Version None)
Quarter: 2006Q4

REPORT INFORMATION
  Report Type: 
  Country: None (occurrence: None)
  Receive Date: 20061010
  Receipt Date: 20060928
  Transmission Date: 20070319
  Serious: Yes (Other)
  Sender: FDA-Public Use
  Company Number: 14883

PATIENT
  Age: 37 Year
  Sex: Male

DRUGS (1)
  1. METHOTREXATE [Suspect]
     Indication: PSORIASIS
     Dosage: 12.5 MG WEEKLY

REACTIONS (5)
  - CUTANEOUS LEISHMANIASIS [None]
  - DRUG RESISTANCE [None]
  - FATIGUE [None]
  - NAUSEA [None]
  - TRANSAMINASES INCREASED [None]
